FAERS Safety Report 5124641-1 (Version None)
Quarter: 2006Q4

REPORT INFORMATION
  Report Type: 
  Country: None (occurrence: None)
  Receive Date: 20061011
  Receipt Date: 20060928
  Transmission Date: 20070319
  Serious: Yes (Other)
  Sender: FDA-Public Use
  Company Number: US-BRISTOL-MYERS SQUIBB COMPANY-13524921

PATIENT
  Age: 59 Year
  Sex: Male
  Weight: 125 kg

DRUGS (12)
  1. ORENCIA [Suspect]
     Indication: RHEUMATOID ARTHRITIS
     Route: 042
     Dates: start: 20060831
  2. RELAFEN [Concomitant]
  3. PREDNISONE TAB [Concomitant]
  4. PERCOCET [Concomitant]
  5. NEXIUM [Concomitant]
     Route: 048
  6. ZOCOR [Concomitant]
  7. CARDIZEM CD [Concomitant]
  8. ZESTRIL [Concomitant]
     Route: 048
  9. XOPENEX [Concomitant]
     Dosage: DOSAGE FORM = 0.31 MG/3 ML
  10. SPIRIVA [Concomitant]
  11. FLONASE [Concomitant]
  12. COLACE [Concomitant]

REACTIONS (1)
  - ANAPHYLACTIC REACTION [None]
